FAERS Safety Report 7443271-X (Version None)
Quarter: 2011Q2

REPORT INFORMATION
  Report Type: 
  Country: None (occurrence: None)
  Receive Date: 20110428
  Receipt Date: 20110421
  Transmission Date: 20111010
  Serious: Yes (Other)
  Sender: FDA-Public Use
  Company Number: A0576381A

PATIENT
  Age: 80 Year
  Sex: Female

DRUGS (12)
  1. FLOVENT [Suspect]
     Dosage: 1PUFF TWICE PER DAY
     Route: 055
     Dates: start: 20100409
  2. ADVAIR DISKUS 100/50 [Suspect]
     Indication: ASTHMA
     Route: 055
     Dates: start: 20101101
  3. VITAMIN D [Concomitant]
  4. VITAMIN C [Concomitant]
  5. FLOVENT [Suspect]
     Route: 055
     Dates: start: 20051001
  6. CALCIUM [Concomitant]
  7. PREDNISONE [Concomitant]
     Dates: end: 20100726
  8. FLOVENT [Suspect]
     Indication: ASTHMA
     Dosage: 1PUFF THREE TIMES PER DAY
     Route: 055
     Dates: start: 20100602, end: 20101101
  9. THYROID TAB [Concomitant]
     Route: 048
  10. XOPENEX [Suspect]
     Route: 055
  11. COMBIVENT [Concomitant]
     Dosage: 2PUFF VARIABLE DOSE
     Route: 055
  12. THEOPHYLLINE [Concomitant]

REACTIONS (20)
  - CHEST DISCOMFORT [None]
  - INCREASED UPPER AIRWAY SECRETION [None]
  - NO THERAPEUTIC RESPONSE [None]
  - DRUG INEFFECTIVE [None]
  - LIP SWELLING [None]
  - PALPITATIONS [None]
  - CONFUSIONAL STATE [None]
  - EMOTIONAL DISTRESS [None]
  - GAIT DISTURBANCE [None]
  - BONE PAIN [None]
  - SWOLLEN TONGUE [None]
  - JOINT STIFFNESS [None]
  - DYSPNOEA [None]
  - DYSPHONIA [None]
  - PRODUCTIVE COUGH [None]
  - THROAT TIGHTNESS [None]
  - ARTHRALGIA [None]
  - MALAISE [None]
  - PULMONARY CONGESTION [None]
  - OVERDOSE [None]
